FAERS Safety Report 6720090-0 (Version None)
Quarter: 2010Q2

REPORT INFORMATION
  Report Type: 
  Country: None (occurrence: None)
  Receive Date: 20100511
  Receipt Date: 20100507
  Transmission Date: 20101027
  Serious: Yes (Other)
  Sender: FDA-Public Use
  Company Number: FR-BRISTOL-MYERS SQUIBB COMPANY-15097231

PATIENT
  Age: 62 Year
  Sex: Female

DRUGS (5)
  1. BUSPAR [Suspect]
     Indication: GENERALISED ANXIETY DISORDER
     Dosage: INCREASED TO 25MG PER DAY ON 01MAY2010
     Route: 048
     Dates: start: 20100427
  2. ATHYMIL [Suspect]
     Dosage: TABLET PER DAY
     Route: 048
     Dates: start: 20100424
  3. MEPRONIZINE [Suspect]
     Route: 048
     Dates: start: 20100430
  4. RIVOTRIL [Suspect]
     Route: 048
     Dates: start: 20100502
  5. LEVOTHYROXINE SODIUM [Concomitant]
     Dosage: SINCE 15 YRS
     Route: 048

REACTIONS (1)
  - NEUTROPENIA [None]
